FAERS Safety Report 8495751-6 (Version None)
Quarter: 2012Q3

REPORT INFORMATION
  Report Type: 
  Country: None (occurrence: None)
  Receive Date: 20120709
  Receipt Date: 20120705
  Transmission Date: 20120928
  Serious: Yes (Hospitalization)
  Sender: FDA-Public Use
  Company Number: CA-ROCHE-1084556

PATIENT
  Age: 60 Year
  Sex: Male
  Weight: 59.02 kg

DRUGS (1)
  1. RITUXAN [Suspect]
     Indication: PRODUCT USED FOR UNKNOWN INDICATION
     Route: 042

REACTIONS (5)
  - PYREXIA [None]
  - MOBILITY DECREASED [None]
  - URINE FLOW DECREASED [None]
  - DYSURIA [None]
  - CHILLS [None]
